FAERS Safety Report 9937096 (Version 1)
Quarter: 2014Q1

REPORT INFORMATION
  Report Type: Spontaneous
  Country: US (occurrence: US)
  Receive Date: 20140301
  Receipt Date: 20140301
  Transmission Date: 20141002
  Serious: Yes (Other)
  Sender: FDA-Public Use
  Company Number: US-ROCHE-1357639

PATIENT
  Age: 62 Year
  Sex: Female

DRUGS (1)
  1. KLONOPIN [Suspect]
     Indication: ANXIETY
     Route: 048

REACTIONS (1)
  - Cervix carcinoma [Unknown]
